FAERS Safety Report 8606346-5 (Version None)
Quarter: 2012Q3

REPORT INFORMATION
  Report Type: 
  Country: None (occurrence: None)
  Receive Date: 20120820
  Receipt Date: 20110711
  Transmission Date: 20120928
  Serious: Yes (Other)
  Sender: FDA-Public Use
  Company Number: JP-GE HEALTHCARE MEDICAL DIAGNOSTICS-MSTR-NO-1106S-0172

PATIENT
  Sex: Female

DRUGS (2)
  1. METASTRON [Suspect]
     Indication: METASTATIC PAIN
     Route: 042
     Dates: start: 20110531, end: 20110531
  2. METASTRON [Suspect]
     Indication: DIAGNOSTIC PROCEDURE

REACTIONS (1)
  - NO ADVERSE EVENT [None]
